FAERS Safety Report 20344662 (Version 1)
Quarter: 2022Q1

REPORT INFORMATION
  Report Type: Spontaneous
  Country: US (occurrence: US)
  Receive Date: 20220118
  Receipt Date: 20220118
  Transmission Date: 20220423
  Serious: Yes (Other)
  Sender: FDA-Public Use
  Company Number: US-Hikma Pharmaceuticals USA Inc.-US-H14001-22-00071

PATIENT
  Sex: Male

DRUGS (1)
  1. PREDNISONE [Suspect]
     Active Substance: PREDNISONE
     Indication: Ear infection
     Route: 065

REACTIONS (8)
  - Insomnia [Unknown]
  - Energy increased [Unknown]
  - Aggression [Unknown]
  - Dizziness [Unknown]
  - Feeling abnormal [Unknown]
  - Communication disorder [Unknown]
  - Mental disorder [Unknown]
  - Drug dependence [Unknown]
